FAERS Safety Report 9762068 (Version 1)
Quarter: 2013Q4

REPORT INFORMATION
  Report Type: Spontaneous
  Country: US (occurrence: US)
  Receive Date: 20131216
  Receipt Date: 20131216
  Transmission Date: 20140711
  Serious: No
  Sender: FDA-Public Use
  Company Number: US-BIOGENIDEC-2013BI107725

PATIENT
  Age: 44 Year
  Sex: Female

DRUGS (11)
  1. TECFIDERA [Suspect]
     Indication: MULTIPLE SCLEROSIS
     Route: 048
     Dates: start: 20130709
  2. CALCIUM [Concomitant]
     Indication: PRODUCT USED FOR UNKNOWN INDICATION
  3. BACTRIM DS [Concomitant]
     Indication: PRODUCT USED FOR UNKNOWN INDICATION
  4. POTASSIUM 99 [Concomitant]
     Indication: PRODUCT USED FOR UNKNOWN INDICATION
  5. FORMULA TESTOSTERONE [Concomitant]
     Indication: PRODUCT USED FOR UNKNOWN INDICATION
  6. PROGESTERONE [Concomitant]
     Indication: PRODUCT USED FOR UNKNOWN INDICATION
  7. MINIVELLE [Concomitant]
     Indication: PRODUCT USED FOR UNKNOWN INDICATION
  8. TYLENOL #3 [Concomitant]
     Indication: PRODUCT USED FOR UNKNOWN INDICATION
  9. WELLBUTRIN SR [Concomitant]
     Indication: PRODUCT USED FOR UNKNOWN INDICATION
  10. VESICARE [Concomitant]
     Indication: PRODUCT USED FOR UNKNOWN INDICATION
  11. IBUPROPHEN [Concomitant]
     Indication: PRODUCT USED FOR UNKNOWN INDICATION

REACTIONS (1)
  - Nausea [Recovered/Resolved]
